FAERS Safety Report 25433583 (Version 5)
Quarter: 2025Q4

REPORT INFORMATION
  Report Type: Spontaneous
  Country: CA (occurrence: CA)
  Receive Date: 20250613
  Receipt Date: 20251218
  Transmission Date: 20260117
  Serious: Yes (Hospitalization, Other)
  Sender: PFIZER
  Company Number: CA-PFIZER INC-PV202500070192

PATIENT
  Age: 81 Year
  Sex: Female

DRUGS (11)
  1. IXIFI [Suspect]
     Active Substance: INFLIXIMAB-QBTX
     Indication: Crohn^s disease
     Dosage: 300 MG, EVERY 8 WEEKS
     Route: 042
     Dates: start: 20250415
  2. IXIFI [Suspect]
     Active Substance: INFLIXIMAB-QBTX
     Dosage: 200 MG, EVERY 8 WEEKS
     Route: 042
     Dates: start: 20250610
  3. IXIFI [Suspect]
     Active Substance: INFLIXIMAB-QBTX
     Dosage: 200 MG, EVERY 8 WEEKS
     Route: 042
     Dates: start: 20250805
  4. IXIFI [Suspect]
     Active Substance: INFLIXIMAB-QBTX
     Dosage: 200 MG, EVERY 8 WEEKS
     Route: 042
     Dates: start: 20250930
  5. IXIFI [Suspect]
     Active Substance: INFLIXIMAB-QBTX
     Dosage: 200 MG, EVERY 8 WEEKS
     Route: 042
     Dates: start: 20251211
  6. AMLODIPINE [Concomitant]
     Active Substance: AMLODIPINE BESYLATE
     Dosage: UNK
  7. LEVODOPA [Concomitant]
     Active Substance: LEVODOPA
     Dosage: UNK
  8. METFORMIN [Concomitant]
     Active Substance: METFORMIN HYDROCHLORIDE
     Dosage: UNK
  9. VITAMIN B12 [Concomitant]
     Active Substance: CYANOCOBALAMIN
     Dosage: UNK
  10. VIT D [VITAMIN D NOS] [Concomitant]
     Dosage: UNK
  11. JARDIANCE [Concomitant]
     Active Substance: EMPAGLIFLOZIN
     Dosage: UNK

REACTIONS (5)
  - Blood glucose increased [Unknown]
  - Cystitis [Unknown]
  - Urinary retention [Unknown]
  - Muscular weakness [Unknown]
  - Constipation [Unknown]

NARRATIVE: CASE EVENT DATE: 20250101
